FAERS Safety Report 4896945-9 (Version None)
Quarter: 2006Q1

REPORT INFORMATION
  Report Type: 
  Country: None (occurrence: None)
  Receive Date: 20060127
  Receipt Date: 20060106
  Transmission Date: 20060701
  Serious: Yes (Other)
  Sender: FDA-Public Use
  Company Number: CH200601001219

PATIENT
  Age: 38 Year
  Sex: Female

DRUGS (3)
  1. FLUOXETINE HCL [Suspect]
     Dosage: 20 MG, DAILY (1/D), ORAL
     Route: 048
     Dates: end: 20051125
  2. SOMNIUM/SCH/(DIPHENHYDRAMINE HYDROCHLORIDE, LORAZEPAM) [Concomitant]
  3. STILNOX /SCH/ (ZOLPIDEM TARTRATE) [Concomitant]

REACTIONS (2)
  - DRUG EXPOSURE DURING PREGNANCY [None]
  - UNINTENDED PREGNANCY [None]
